FAERS Safety Report 6196083-1 (Version None)
Quarter: 2009Q2

REPORT INFORMATION
  Report Type: 
  Country: None (occurrence: None)
  Receive Date: 20090520
  Receipt Date: 20080411
  Transmission Date: 20091009
  Serious: Yes (Other)
  Sender: FDA-Public Use
  Company Number: US-ASTRAZENECA-2007UW25109

PATIENT
  Age: 53 Year
  Sex: Female
  Weight: 86.2 kg

DRUGS (32)
  1. SEROQUEL [Suspect]
     Indication: DEPRESSION
     Dosage: 50 MG - 600 MG
     Route: 048
     Dates: start: 20011101, end: 20041101
  2. SEROQUEL [Suspect]
     Indication: ANXIETY
     Dosage: 50 MG - 600 MG
     Route: 048
     Dates: start: 20011101, end: 20041101
  3. SEROQUEL [Suspect]
     Dosage: 25 - 300 MG
     Route: 048
     Dates: start: 20011109
  4. SEROQUEL [Suspect]
     Dosage: 25 - 300 MG
     Route: 048
     Dates: start: 20011109
  5. ATIVAN [Concomitant]
     Dosage: 1 - 2 MG
     Route: 065
  6. PAXIL [Concomitant]
     Indication: ANXIETY DISORDER
     Dosage: 12.5 - 50 MG
     Route: 065
  7. MIRTAZAPINE [Concomitant]
     Dosage: 15 - 30 MG
     Route: 065
  8. HYDROXYZINE [Concomitant]
     Dosage: 25 - 50 MG
     Route: 065
  9. CLONAZEPAM [Concomitant]
     Route: 065
  10. METFORMIN HYDROCHLORIDE [Concomitant]
     Dosage: 500 MG, 2 TABLET IN MORNING AND 2 TABLET IN THE EVENING
     Route: 065
  11. ESTROGEN ESTERIFIED [Concomitant]
     Route: 065
  12. SERZONE [Concomitant]
     Dosage: 100 - 200 MG
     Route: 065
  13. EFFEXOR [Concomitant]
     Route: 065
  14. DESYREL [Concomitant]
     Route: 065
  15. GLYBURIDE [Concomitant]
     Indication: HYPOGLYCAEMIA
     Dosage: 5 - 20 MG
     Route: 065
  16. LISINOPRIL [Concomitant]
     Dosage: 10 - 40 MG
     Route: 065
  17. ASPIRIN [Concomitant]
     Route: 065
  18. PROPRANOLOL HYDROCHLORIDE [Concomitant]
     Indication: TREMOR
     Route: 048
  19. ZOCOR [Concomitant]
     Route: 065
  20. ACTOS [Concomitant]
     Dosage: 15 - 45 MG
     Route: 065
  21. CYCLOBENZAPRINE HCL [Concomitant]
     Route: 065
  22. DIAZEPAM [Concomitant]
     Route: 065
  23. DESIPRAMINE HYDROCHLORIDE [Concomitant]
     Dosage: 25 - 50 MG
     Route: 065
  24. NITROFURANTOIN [Concomitant]
     Route: 065
  25. GLYCOLAX [Concomitant]
     Route: 065
  26. ZOLOFT [Concomitant]
     Dosage: 25 - 50 MG
     Route: 065
  27. CYPROHEPTADINE HYDROCHLORIDE [Concomitant]
     Route: 048
  28. ZELNORM [Concomitant]
     Route: 065
  29. DICYCLOMINE HYDROCHLORIDE [Concomitant]
     Route: 065
  30. SULINDAC [Concomitant]
     Route: 065
  31. ZYRTEC [Concomitant]
     Route: 065
  32. RHINOCORT [Concomitant]

REACTIONS (32)
  - ABDOMINAL PAIN [None]
  - ACROMEGALY [None]
  - ACUTE SINUSITIS [None]
  - ANXIETY [None]
  - ARTHRALGIA [None]
  - BACK PAIN [None]
  - BLOOD THYROID STIMULATING HORMONE INCREASED [None]
  - CONSTIPATION [None]
  - CONTUSION [None]
  - DENTAL PROSTHESIS PLACEMENT [None]
  - DIABETES MELLITUS [None]
  - DIABETIC NEUROPATHY [None]
  - DYSPHAGIA [None]
  - GASTROOESOPHAGEAL REFLUX DISEASE [None]
  - GIGANTISM [None]
  - HEADACHE [None]
  - HIATUS HERNIA [None]
  - HYPERLIPIDAEMIA [None]
  - HYPERTENSION [None]
  - IRRITABLE BOWEL SYNDROME [None]
  - JOINT INJURY [None]
  - NAUSEA [None]
  - ORTHOSTATIC HYPOTENSION [None]
  - OSTEOARTHRITIS [None]
  - PAIN IN EXTREMITY [None]
  - RHINITIS ALLERGIC [None]
  - SCIATICA [None]
  - SINUS HEADACHE [None]
  - TREMOR [None]
  - TYPE 2 DIABETES MELLITUS [None]
  - UPPER RESPIRATORY TRACT INFECTION [None]
  - VAGINAL DISCHARGE [None]
